FAERS Safety Report 23936646 (Version 1)
Quarter: 2024Q2

REPORT INFORMATION
  Report Type: Spontaneous
  Country: US (occurrence: None)
  Receive Date: 20240603
  Receipt Date: 20240603
  Transmission Date: 20240715
  Serious: Yes (Disabling)
  Sender: FDA-Public Use
  Company Number: None

PATIENT
  Age: 70 Year
  Sex: Female
  Weight: 67.5 kg

DRUGS (8)
  1. REPATHA [Suspect]
     Active Substance: EVOLOCUMAB
     Indication: Type IIa hyperlipidaemia
     Dosage: OTHER QUANTITY : 1 INJECTION(S)?OTHER FREQUENCY : 1EVERY2WEEKS?
     Route: 058
     Dates: start: 20231228, end: 20240603
  2. TIROSINT [Concomitant]
     Active Substance: LEVOTHYROXINE SODIUM
  3. AMLODIPINE [Concomitant]
  4. FAMOTIDINE [Concomitant]
  5. CLOPIDOGREL [Concomitant]
  6. Multivitamin [Concomitant]
  7. Osteobiflex [Concomitant]
  8. Hawthorne berry Memory supplement [Concomitant]

REACTIONS (1)
  - Type 2 diabetes mellitus [None]

NARRATIVE: CASE EVENT DATE: 20240601
